FAERS Safety Report 8111996-9 (Version None)
Quarter: 2012Q1

REPORT INFORMATION
  Report Type: 
  Country: None (occurrence: None)
  Receive Date: 20120203
  Receipt Date: 20120130
  Transmission Date: 20120608
  Serious: Yes (Hospitalization, Other)
  Sender: FDA-Public Use
  Company Number: US-PFIZER INC-2012024975

PATIENT
  Sex: Male
  Weight: 99.773 kg

DRUGS (7)
  1. OXYCODONE HCL [Suspect]
     Indication: PAIN
     Dosage: 7.5 MG/325MG EVERY 6-8 HRS, AS NEEDED
     Route: 048
  2. VIAGRA [Suspect]
     Indication: CARDIOVASCULAR INSUFFICIENCY
     Dosage: 100 MG, AS NEEDED
     Route: 048
     Dates: start: 20110301, end: 20110401
  3. CIALIS [Suspect]
     Indication: CARDIOVASCULAR INSUFFICIENCY
     Dosage: UNK, DAILY
     Route: 048
     Dates: start: 20110301, end: 20110401
  4. ALPRAZOLAM [Suspect]
     Indication: ANXIETY
     Dosage: 3X/DAY
     Route: 048
  5. ALLOPURINOL [Suspect]
     Indication: GOUT
     Dosage: 300 MG, DAILY
  6. HYOSCYAMINE [Suspect]
     Indication: OESOPHAGEAL DISORDER
     Dosage: 0.125 MG, AS NEEDED
     Route: 060
  7. DIOVAN [Suspect]
     Indication: BLOOD PRESSURE ABNORMAL
     Dosage: 160 MG, 2X/DAY
     Route: 048

REACTIONS (8)
  - VISION BLURRED [None]
  - DRUG ADMINISTRATION ERROR [None]
  - HERPES ZOSTER [None]
  - ARTHRITIS [None]
  - NEOPLASM PROGRESSION [None]
  - CYANOPSIA [None]
  - URINARY TRACT DISORDER [None]
  - RETINAL FUNCTION TEST ABNORMAL [None]
